FAERS Safety Report 25039563 (Version 1)
Quarter: 2025Q1

REPORT INFORMATION
  Report Type: Report from Study
  Country: US (occurrence: US)
  Receive Date: 20250305
  Receipt Date: 20250305
  Transmission Date: 20250409
  Serious: Yes (Other)
  Sender: AMGEN
  Company Number: US-AMGEN-USASL2025000250

PATIENT
  Age: 42 Year
  Sex: Female

DRUGS (4)
  1. TEPEZZA [Suspect]
     Active Substance: TEPROTUMUMAB-TRBW
     Indication: Toxic goitre
     Route: 040
     Dates: start: 20241220
  2. TEPEZZA [Suspect]
     Active Substance: TEPROTUMUMAB-TRBW
     Dosage: 20 MILLIGRAM/KILOGRAM, Q3WK
     Route: 040
  3. TEPEZZA [Suspect]
     Active Substance: TEPROTUMUMAB-TRBW
     Dosage: 20 MILLIGRAM/KILOGRAM, Q3WK (AT 50 ML/HR AT 1313 AND INCREASED TO 100 ML/HR AT 1345)
     Route: 040
     Dates: start: 202502
  4. TRELEGY ELLIPTA [Concomitant]
     Active Substance: FLUTICASONE FUROATE\UMECLIDINIUM BROMIDE\VILANTEROL TRIFENATATE
     Indication: Asthma

REACTIONS (5)
  - Feeling cold [Recovered/Resolved]
  - Blood pressure increased [Recovered/Resolved]
  - Nausea [Unknown]
  - Muscle spasms [Unknown]
  - Dry skin [Unknown]

NARRATIVE: CASE EVENT DATE: 20241201
